FAERS Safety Report 23348960 (Version 1)
Quarter: 2023Q4

REPORT INFORMATION
  Report Type: Spontaneous
  Country: US (occurrence: US)
  Receive Date: 20231229
  Receipt Date: 20231229
  Transmission Date: 20240110
  Serious: Yes (Other)
  Sender: FDA-Public Use
  Company Number: US-GSK-US2023177390

PATIENT

DRUGS (7)
  1. TIVICAY [Suspect]
     Active Substance: DOLUTEGRAVIR SODIUM
     Indication: Product used for unknown indication
     Dosage: 1 DF, QD
  2. VENTOLIN HFA [Suspect]
     Active Substance: ALBUTEROL SULFATE
     Indication: Cough
     Dosage: 2 PUFF(S), EVERY 4 TO 6 HOURS AS NEEDED
     Route: 055
  3. QVAR REDIHALER [Suspect]
     Active Substance: BECLOMETHASONE DIPROPIONATE
     Indication: Product used for unknown indication
     Dosage: 1 PUFF(S), BID
     Route: 055
  4. TRIAMCINOLONE [Suspect]
     Active Substance: TRIAMCINOLONE
     Indication: Product used for unknown indication
     Dosage: UNK UNK, BID, APPLY EXTERNALLY TO THE AFFECTED AREA TWICE DAILY
     Route: 061
  5. TRUVADA [Suspect]
     Active Substance: EMTRICITABINE\TENOFOVIR DISOPROXIL FUMARATE
     Indication: Product used for unknown indication
     Dosage: UNK UNK, QD, 200 MG TO 300MG
  6. ALLEGRA ALLERGY [Suspect]
     Active Substance: FEXOFENADINE HYDROCHLORIDE
     Indication: Product used for unknown indication
     Dosage: 1 DF, QD
     Route: 048
  7. VYVANSE [Suspect]
     Active Substance: LISDEXAMFETAMINE DIMESYLATE
     Indication: Product used for unknown indication
     Dosage: 1 DF, QD
     Route: 048

REACTIONS (16)
  - Deafness [Unknown]
  - Major depression [Unknown]
  - Asthma [Unknown]
  - Hyperlipidaemia [Unknown]
  - Cough [Unknown]
  - Liver function test abnormal [Unknown]
  - Mycoplasma infection [Unknown]
  - Arthralgia [Unknown]
  - Dysuria [Unknown]
  - Upper-airway cough syndrome [Unknown]
  - Urethritis [Unknown]
  - Urethral discharge [Unknown]
  - Hyperhidrosis [Unknown]
  - Dermatitis [Unknown]
  - Sexual transmission of infection [Unknown]
  - Illness [Unknown]

NARRATIVE: CASE EVENT DATE: 20190123
